FAERS Safety Report 26126804 (Version 1)
Quarter: 2025Q4

REPORT INFORMATION
  Report Type: Spontaneous
  Country: EU (occurrence: EU)
  Receive Date: 20251205
  Receipt Date: 20251205
  Transmission Date: 20260118
  Serious: Yes (Other)
  Sender: BAUSCH AND LOMB
  Company Number: EU-BAUSCH-BH-2025-021335

PATIENT
  Sex: Male

DRUGS (3)
  1. MINOCYCLINE [Suspect]
     Active Substance: MINOCYCLINE HYDROCHLORIDE
     Indication: SAPHO syndrome
     Route: 065
  2. MINOCYCLINE [Suspect]
     Active Substance: MINOCYCLINE HYDROCHLORIDE
  3. ADALIMUMAB [Concomitant]
     Active Substance: ADALIMUMAB
     Indication: SAPHO syndrome
     Dosage: EVERY TWO WEEKS
     Route: 065

REACTIONS (1)
  - Drug-induced liver injury [Unknown]
